FAERS Safety Report 12177740 (Version 1)
Quarter: 2016Q1

REPORT INFORMATION
  Report Type: Spontaneous
  Country: US (occurrence: None)
  Receive Date: 20160314
  Receipt Date: 20160314
  Transmission Date: 20160526
  Serious: Yes (Death)
  Sender: FDA-Public Use
  Company Number: None

PATIENT
  Age: 18 Year
  Sex: Female
  Weight: 129 kg

DRUGS (3)
  1. OCP [Concomitant]
  2. PENICILLIN VK [Concomitant]
     Active Substance: PENICILLIN V POTASSIUM
  3. ELTROMBOPAG [Suspect]
     Active Substance: ELTROMBOPAG
     Indication: IMMUNE THROMBOCYTOPENIC PURPURA
     Dosage: 1 TABLET QD ORAL
     Route: 048

REACTIONS (9)
  - Headache [None]
  - Seizure [None]
  - Haemorrhage intracranial [None]
  - Mental status changes [None]
  - Brain oedema [None]
  - Brain herniation [None]
  - Brain death [None]
  - Cerebral venous thrombosis [None]
  - Photophobia [None]

NARRATIVE: CASE EVENT DATE: 20160310
